FAERS Safety Report 5839730-3 (Version None)
Quarter: 2008Q3

REPORT INFORMATION
  Report Type: 
  Country: None (occurrence: None)
  Receive Date: 20080811
  Receipt Date: 20080710
  Transmission Date: 20090109
  Serious: No
  Sender: FDA-Public Use
  Company Number: US-BAYER-200828024NA

PATIENT
  Sex: Male

DRUGS (1)
  1. CIPRO [Suspect]
     Indication: PROSTATE INFECTION
     Dosage: TOTAL DAILY DOSE: 1000 MG  UNIT DOSE: 500 MG
     Dates: end: 20080301

REACTIONS (4)
  - MUSCULOSKELETAL DISCOMFORT [None]
  - SLEEP DISORDER [None]
  - TENDON DISORDER [None]
  - TENDON PAIN [None]
